FAERS Safety Report 23113985 (Version 1)
Quarter: 2023Q4

REPORT INFORMATION
  Report Type: Report from Study
  Country: US (occurrence: None)
  Receive Date: 20231027
  Receipt Date: 20231027
  Transmission Date: 20240110
  Serious: Yes (Other)
  Sender: FDA-Public Use
  Company Number: 2023A241330

PATIENT
  Sex: Male

DRUGS (5)
  1. FASENRA [Suspect]
     Active Substance: BENRALIZUMAB
     Indication: Asthma
     Dosage: 30MG/ML EVERY EIGHT WEEKS
     Route: 058
     Dates: start: 20200812
  2. SYMBICORT [Suspect]
     Active Substance: BUDESONIDE\FORMOTEROL FUMARATE DIHYDRATE
     Dosage: 160-4.5, UNKNOWN UNKNOWN
     Route: 055
  3. BUDESONIDE\FORMOTEROL FUMARATE [Suspect]
     Active Substance: BUDESONIDE\FORMOTEROL FUMARATE
     Dosage: 160-4.5, UNKNOWN UNKNOWN
     Route: 055
  4. ALLOPURINOL [Concomitant]
     Active Substance: ALLOPURINOL
  5. MOMETASONE [Concomitant]
     Active Substance: MOMETASONE
     Dosage: 0.1 %

REACTIONS (1)
  - Gout [Unknown]
